FAERS Safety Report 9245646 (Version 1)
Quarter: 2013Q2

REPORT INFORMATION
  Report Type: Report from Study
  Country: NO (occurrence: NO)
  Receive Date: 20130422
  Receipt Date: 20130422
  Transmission Date: 20140414
  Serious: Yes (Other)
  Sender: FDA-Public Use
  Company Number: NO-BAYER-2013-046833

PATIENT
  Age: 35 Year
  Sex: Female

DRUGS (2)
  1. MIRENA [Suspect]
     Dosage: 20 ?G/D, CONT
     Route: 015
     Dates: end: 20130412
  2. MIRENA [Suspect]
     Dosage: 20 ?G/D, CONT
     Route: 015
     Dates: start: 20130412

REACTIONS (7)
  - Erythroplasia [None]
  - Amenorrhoea [None]
  - Device dislocation [None]
  - Procedural pain [None]
  - Device difficult to use [None]
  - Tension [None]
  - Malaise [None]
